FAERS Safety Report 12609568 (Version 1)
Quarter: 2016Q3

REPORT INFORMATION
  Report Type: Spontaneous
  Country: US (occurrence: US)
  Receive Date: 20160801
  Receipt Date: 20160801
  Transmission Date: 20161109
  Serious: No
  Sender: FDA-Public Use
  Company Number: US-TEVA-644745USA

PATIENT
  Sex: Female

DRUGS (2)
  1. ZEBETA [Suspect]
     Active Substance: BISOPROLOL FUMARATE
     Indication: VENTRICULAR EXTRASYSTOLES
  2. ZEBETA [Suspect]
     Active Substance: BISOPROLOL FUMARATE

REACTIONS (1)
  - Dizziness [Unknown]
